FAERS Safety Report 21577569 (Version 1)
Quarter: 2022Q4

REPORT INFORMATION
  Report Type: Spontaneous
  Country: US (occurrence: US)
  Receive Date: 20221110
  Receipt Date: 20221110
  Transmission Date: 20230113
  Serious: Yes (Hospitalization, Other)
  Sender: FDA-Public Use
  Company Number: US-KYOWAKIRIN-2022AKK017220

PATIENT
  Age: 22 Year
  Sex: Male

DRUGS (4)
  1. FILGRASTIM [Suspect]
     Active Substance: FILGRASTIM
     Indication: Blood stem cell harvest
     Dosage: 920 MICROGRAM, QD
     Route: 058
     Dates: start: 19950615, end: 19950620
  2. LORAZEPAM [Concomitant]
     Active Substance: LORAZEPAM
     Indication: Product used for unknown indication
     Dosage: UNK
     Route: 065
  3. AMITRIPTYLINE HYDROCHLORIDE [Concomitant]
     Active Substance: AMITRIPTYLINE HYDROCHLORIDE
     Indication: Product used for unknown indication
     Dosage: UNK
     Route: 065
  4. DESIPRAMINE HYDROCHLORIDE [Concomitant]
     Active Substance: DESIPRAMINE HYDROCHLORIDE
     Indication: Product used for unknown indication
     Dosage: UNK
     Route: 065

REACTIONS (8)
  - Spleen disorder [Unknown]
  - Pneumothorax [Unknown]
  - Extramedullary haemopoiesis [Unknown]
  - Acute respiratory distress syndrome [Unknown]
  - Vomiting [Unknown]
  - Splenomegaly [Unknown]
  - Headache [Unknown]
  - Nausea [Unknown]
